FAERS Safety Report 21483779 (Version 1)
Quarter: 2022Q4

REPORT INFORMATION
  Report Type: Spontaneous
  Country: IN (occurrence: IN)
  Receive Date: 20221020
  Receipt Date: 20221020
  Transmission Date: 20230112
  Serious: Yes (Death, Other)
  Sender: FDA-Public Use
  Company Number: IN-SA-SAC20221019002026

PATIENT
  Age: 26 Year
  Sex: Female

DRUGS (2)
  1. CEREZYME [Suspect]
     Active Substance: IMIGLUCERASE
     Route: 065
     Dates: start: 202206
  2. ICAPS [MINERALS NOS;VITAMINS NOS] [Concomitant]
     Dosage: 2 DF

REACTIONS (1)
  - Cardiac failure [Fatal]
